FAERS Safety Report 14701059 (Version 2)
Quarter: 2018Q2

REPORT INFORMATION
  Report Type: Spontaneous
  Country: CN (occurrence: CN)
  Receive Date: 20180330
  Receipt Date: 20180504
  Transmission Date: 20180711
  Serious: Yes (Hospitalization)
  Sender: FDA-Public Use
  Company Number: CN-JNJFOC-20180328526

PATIENT
  Age: 28 Year
  Sex: Female
  Weight: 55 kg

DRUGS (2)
  1. RISPERDAL [Suspect]
     Active Substance: RISPERIDONE
     Indication: SCHIZOPHRENIA
     Route: 048
     Dates: start: 20170916, end: 20171006
  2. RISPERDAL [Suspect]
     Active Substance: RISPERIDONE
     Indication: SCHIZOPHRENIA
     Dosage: 3MG AT DAYTIME AND 2MG AT NIGHT, BID PO
     Route: 048
     Dates: start: 20171006, end: 20171010

REACTIONS (3)
  - Menstruation delayed [Recovering/Resolving]
  - Galactorrhoea [Recovering/Resolving]
  - Breast swelling [Recovering/Resolving]

NARRATIVE: CASE EVENT DATE: 20171006
